FAERS Safety Report 9870749 (Version 1)
Quarter: 2014Q1

REPORT INFORMATION
  Report Type: Spontaneous
  Country: US (occurrence: US)
  Receive Date: 20140205
  Receipt Date: 20140205
  Transmission Date: 20141002
  Serious: No
  Sender: FDA-Public Use
  Company Number: US-PFIZER INC-2014031314

PATIENT
  Age: 39 Year
  Sex: Female
  Weight: 81.63 kg

DRUGS (5)
  1. XELJANZ [Suspect]
     Indication: RHEUMATOID ARTHRITIS
     Dosage: 5 MG, 2X/DAY
     Route: 048
     Dates: start: 20130704, end: 201312
  2. PREDNISONE [Concomitant]
     Dosage: 1 MG
  3. VITAMIN D [Concomitant]
     Dosage: 1000 IU
  4. FOLIC ACID [Concomitant]
     Dosage: UNK
  5. METHOTREXATE [Concomitant]
     Dosage: 50MG/2ML

REACTIONS (1)
  - Drug ineffective [Unknown]
